FAERS Safety Report 14598608 (Version 1)
Quarter: 2018Q1

REPORT INFORMATION
  Report Type: Spontaneous
  Country: US (occurrence: US)
  Receive Date: 20180302
  Receipt Date: 20180302
  Transmission Date: 20180509
  Serious: Yes (Hospitalization)
  Sender: FDA-Public Use
  Company Number: None

PATIENT
  Age: 60 Year
  Sex: Female

DRUGS (14)
  1. METOPROLOL TARTRATE. [Concomitant]
     Active Substance: METOPROLOL TARTRATE
  2. PREDNISONE. [Concomitant]
     Active Substance: PREDNISONE
  3. CALC [Concomitant]
  4. ASPIRIN. [Concomitant]
     Active Substance: ASPIRIN
  5. RANLTIDINE [Concomitant]
  6. TRAZODONE [Concomitant]
     Active Substance: TRAZODONE HYDROCHLORIDE
  7. OMEPRAZOLE. [Concomitant]
     Active Substance: OMEPRAZOLE
  8. AMLODIPINE [Concomitant]
     Active Substance: AMLODIPINE BESYLATE
  9. MYCOPHENOLATE [Suspect]
     Active Substance: MYCOPHENOLIC ACID
     Indication: RENAL TRANSPLANT
     Route: 048
     Dates: start: 20150629
  10. FOLIC ACID. [Concomitant]
     Active Substance: FOLIC ACID
  11. DULOXETINE. [Concomitant]
     Active Substance: DULOXETINE
  12. DOCUSIL [Concomitant]
  13. MAGN OXIDE [Concomitant]
  14. FUROSEMIDE. [Concomitant]
     Active Substance: FUROSEMIDE

REACTIONS (4)
  - Labile blood pressure [None]
  - Chest pain [None]
  - Drug dose omission [None]
  - Eye haemorrhage [None]

NARRATIVE: CASE EVENT DATE: 20180301
